FAERS Safety Report 6287991-1 (Version None)
Quarter: 2009Q3

REPORT INFORMATION
  Report Type: 
  Country: None (occurrence: None)
  Receive Date: 20090727
  Receipt Date: 20090727
  Transmission Date: 20100115
  Serious: Yes (Life-Threatening)
  Sender: FDA-Public Use
  Company Number: None

PATIENT
  Age: 64 Year
  Sex: Female

DRUGS (1)
  1. CEFTRIAXONE [Suspect]
     Indication: PNEUMONIA
     Dosage: 1 G ONE TIME IV; ONE DOSE
     Route: 042

REACTIONS (4)
  - DYSPNOEA [None]
  - LIP SWELLING [None]
  - STRIDOR [None]
  - SWOLLEN TONGUE [None]
